FAERS Safety Report 16777076 (Version 1)
Quarter: 2019Q3

REPORT INFORMATION
  Report Type: Spontaneous
  Country: US (occurrence: US)
  Receive Date: 20190905
  Receipt Date: 20190905
  Transmission Date: 20191005
  Serious: Yes (Disabling, Other)
  Sender: FDA-Public Use
  Company Number: US-REGENERON PHARMACEUTICALS, INC.-2019-30065

PATIENT

DRUGS (2)
  1. EYLEA [Suspect]
     Active Substance: AFLIBERCEPT
     Indication: MACULAR DEGENERATION
     Dosage: 2 MG, MONTHLY
     Route: 031
     Dates: start: 20151009
  2. EYLEA [Suspect]
     Active Substance: AFLIBERCEPT
     Dosage: LAST ADMINISTRATION, RIGHT EYE, ABOUT 1-2 MONTHS APART
     Route: 031
     Dates: start: 20190424, end: 20190424

REACTIONS (2)
  - Blindness unilateral [Unknown]
  - Non-infectious endophthalmitis [Recovered/Resolved]

NARRATIVE: CASE EVENT DATE: 20190427
